FAERS Safety Report 14391180 (Version 1)
Quarter: 2018Q1

REPORT INFORMATION
  Report Type: Spontaneous
  Country: US (occurrence: US)
  Receive Date: 20180116
  Receipt Date: 20180116
  Transmission Date: 20180509
  Serious: No
  Sender: FDA-Public Use
  Company Number: US-VIFOR (INTERNATIONAL) INC.-VIT-2017-14403

PATIENT
  Age: 44 Year
  Sex: Female
  Weight: 94.5 kg

DRUGS (18)
  1. PORCINE [Concomitant]
     Dosage: INITIAL.
     Route: 042
     Dates: start: 20160523
  2. SENSIPAR [Concomitant]
     Active Substance: CINACALCET HYDROCHLORIDE
     Dosage: SKIP TUESDAY.
     Dates: start: 20171106
  3. FOSRENOL [Concomitant]
     Active Substance: LANTHANUM CARBONATE
     Dates: start: 20170314
  4. PORCINE [Concomitant]
     Dosage: MAINTAINENCE 500U/HR.
     Route: 042
     Dates: start: 20160523
  5. LIPITOR [Concomitant]
     Active Substance: ATORVASTATIN CALCIUM
     Dates: start: 20150318
  6. MIRCERA [Suspect]
     Active Substance: METHOXY POLYETHYLENE GLYCOL-EPOETIN BETA
     Indication: NEPHROGENIC ANAEMIA
     Route: 040
     Dates: start: 20171215
  7. DIALYVITE SUPREME D3 [Concomitant]
     Route: 048
     Dates: start: 20151212
  8. LIDOCAINE~~PRILOCAINE [Concomitant]
     Dosage: ONE APPLICATION TOPICALLY
     Route: 061
     Dates: start: 20130814
  9. SYNTHROID [Concomitant]
     Active Substance: LEVOTHYROXINE SODIUM
     Dates: start: 20130301
  10. TUMS ULTRA [Concomitant]
     Active Substance: CALCIUM CARBONATE
     Route: 048
     Dates: start: 20130809
  11. CALCITRIOL. [Concomitant]
     Active Substance: CALCITRIOL
     Route: 048
     Dates: start: 20171212
  12. MIRCERA [Suspect]
     Active Substance: METHOXY POLYETHYLENE GLYCOL-EPOETIN BETA
     Route: 040
     Dates: start: 201712
  13. AMLODIPINE BESILATE [Concomitant]
     Active Substance: AMLODIPINE BESYLATE
     Dates: start: 20140509
  14. FUROSEMIDE. [Concomitant]
     Active Substance: FUROSEMIDE
     Dates: start: 20150415
  15. LISINOPRIL. [Concomitant]
     Active Substance: LISINOPRIL
     Dates: start: 20140402
  16. LANTUS [Concomitant]
     Active Substance: INSULIN GLARGINE
     Route: 058
     Dates: start: 20160301
  17. LOPRESSOR [Concomitant]
     Active Substance: METOPROLOL TARTRATE
     Dates: start: 20131007
  18. RENVELA [Concomitant]
     Active Substance: SEVELAMER CARBONATE
     Dosage: WITH MEAL
     Dates: start: 20151212

REACTIONS (3)
  - Medication error [Recovered/Resolved]
  - Drug dose omission [Recovered/Resolved]
  - No adverse event [Recovered/Resolved]

NARRATIVE: CASE EVENT DATE: 20171220
